FAERS Safety Report 6243070-0 (Version None)
Quarter: 2009Q2

REPORT INFORMATION
  Report Type: 
  Country: None (occurrence: None)
  Receive Date: 20090617
  Receipt Date: 20080425
  Transmission Date: 20091009
  Serious: No
  Sender: FDA-Public Use
  Company Number: 275171

PATIENT
  Sex: Female

DRUGS (1)
  1. LEVEMIR [Suspect]
     Indication: DIABETES MELLITUS
     Dosage: SUBCUTANEOUS
     Route: 058

REACTIONS (8)
  - ASTHENIA [None]
  - BLOOD GLUCOSE INCREASED [None]
  - DRY MOUTH [None]
  - HYPERHIDROSIS [None]
  - LYMPHADENOPATHY [None]
  - MUSCLE RIGIDITY [None]
  - PARAESTHESIA [None]
  - PSYCHOMOTOR HYPERACTIVITY [None]
